FAERS Safety Report 13313328 (Version 2)
Quarter: 2017Q2

REPORT INFORMATION
  Report Type: Spontaneous
  Country: US (occurrence: US)
  Receive Date: 20170309
  Receipt Date: 20170404
  Transmission Date: 20170830
  Serious: Yes (Hospitalization)
  Sender: FDA-Public Use
  Company Number: US-INCYTE CORPORATION-2017IN001726

PATIENT
  Age: 61 Year
  Sex: Male

DRUGS (4)
  1. JAKAFI [Suspect]
     Active Substance: RUXOLITINIB
     Dosage: 15 MG, QD ON DIALYSIS DAYS
     Route: 048
  2. JAKAFI [Suspect]
     Active Substance: RUXOLITINIB
     Indication: ESSENTIAL THROMBOCYTHAEMIA
     Dosage: 15 MG, BID
     Route: 048
  3. JAKAFI [Suspect]
     Active Substance: RUXOLITINIB
     Dosage: 15 MG, BID ON NON-DIALYSIS DAY
     Route: 048
  4. JAKAFI [Suspect]
     Active Substance: RUXOLITINIB
     Dosage: 15 MG, BID
     Route: 048
     Dates: start: 20170310

REACTIONS (18)
  - Blast cell count increased [Recovered/Resolved]
  - Tumour lysis syndrome [Recovered/Resolved]
  - Jaundice [Unknown]
  - Off label use [Unknown]
  - White blood cell count increased [Recovered/Resolved]
  - Withdrawal syndrome [Unknown]
  - Encephalopathy [Unknown]
  - Disseminated intravascular coagulation [Recovered/Resolved]
  - Leukocytosis [Recovering/Resolving]
  - Confusional state [Recovered/Resolved]
  - Gastrointestinal disorder [Recovered/Resolved]
  - Pyrexia [Recovered/Resolved]
  - Hepatic failure [Unknown]
  - Kidney infection [Unknown]
  - Renal failure [Unknown]
  - Drug dose omission [Unknown]
  - Agitation [Recovered/Resolved]
  - Multiple organ dysfunction syndrome [Unknown]

NARRATIVE: CASE EVENT DATE: 20170224
